FAERS Safety Report 14728634 (Version 1)
Quarter: 2018Q2

REPORT INFORMATION
  Report Type: Other
  Country: FI (occurrence: FI)
  Receive Date: 20180406
  Receipt Date: 20180406
  Transmission Date: 20180711
  Serious: Yes (Other)
  Sender: FDA-Public Use
  Company Number: FI-GLENMARK PHARMACEUTICALS-2017GMK033960

PATIENT

DRUGS (17)
  1. LITHIUM. [Interacting]
     Active Substance: LITHIUM
     Dosage: 1200 MG, TOTAL
     Route: 065
     Dates: start: 201705
  2. LAMOTRIGIN [Concomitant]
     Active Substance: LAMOTRIGINE
     Indication: PRODUCT USED FOR UNKNOWN INDICATION
     Dosage: UNK
     Route: 065
  3. MOMETASONE FUROATE. [Suspect]
     Active Substance: MOMETASONE FUROATE
     Indication: PRODUCT USED FOR UNKNOWN INDICATION
     Dosage: UNK
     Route: 065
  4. ABILIFY [Interacting]
     Active Substance: ARIPIPRAZOLE
     Dosage: 20 MG, TOTAL
     Route: 048
     Dates: start: 20161010, end: 20161102
  5. OLANZAPINE. [Concomitant]
     Active Substance: OLANZAPINE
     Indication: PRODUCT USED FOR UNKNOWN INDICATION
     Dosage: 10 MG, TOTAL
     Route: 065
     Dates: start: 20160324
  6. TAMSULOSIN HCL [Concomitant]
     Active Substance: TAMSULOSIN HYDROCHLORIDE
     Indication: PRODUCT USED FOR UNKNOWN INDICATION
     Dosage: UNK
     Route: 065
  7. ABILIFY [Interacting]
     Active Substance: ARIPIPRAZOLE
     Dosage: 15 MG, TOTAL
     Route: 048
     Dates: start: 20161102, end: 20161104
  8. QUETIAPINE. [Concomitant]
     Active Substance: QUETIAPINE
     Indication: PRODUCT USED FOR UNKNOWN INDICATION
     Dosage: UNK
     Route: 065
  9. OLANZAPINE. [Concomitant]
     Active Substance: OLANZAPINE
     Dosage: 5 MG, UNK
     Route: 065
  10. ABILIFY [Interacting]
     Active Substance: ARIPIPRAZOLE
     Indication: BIPOLAR DISORDER
     Dosage: 30 MG, TOTAL
     Route: 048
     Dates: start: 20150302, end: 20161010
  11. ABILIFY [Interacting]
     Active Substance: ARIPIPRAZOLE
     Dosage: 15 MG, TOTAL
     Route: 048
     Dates: start: 20170307, end: 20170324
  12. LITHIUM. [Interacting]
     Active Substance: LITHIUM
     Indication: BIPOLAR DISORDER
     Dosage: 300 MG, QD
     Route: 065
     Dates: start: 20161017, end: 20161018
  13. LITHIUM. [Interacting]
     Active Substance: LITHIUM
     Dosage: 900 MG, TOTAL
     Route: 065
     Dates: start: 20161024, end: 201705
  14. ABILIFY [Interacting]
     Active Substance: ARIPIPRAZOLE
     Dosage: 20 MG, TOTAL
     Route: 048
     Dates: start: 20170324
  15. LITHIUM. [Interacting]
     Active Substance: LITHIUM
     Dosage: 600 MG, UNK
     Route: 065
     Dates: start: 20161018, end: 20161024
  16. LEVOMEPROMAZINE [Concomitant]
     Active Substance: LEVOMEPROMAZINE
     Indication: PRODUCT USED FOR UNKNOWN INDICATION
     Dosage: UNK
     Route: 065
  17. ABILIFY [Interacting]
     Active Substance: ARIPIPRAZOLE
     Dosage: 10 MG, TOTAL
     Route: 048
     Dates: start: 20161104, end: 20170307

REACTIONS (12)
  - Restless legs syndrome [Unknown]
  - Diarrhoea [Unknown]
  - Limb discomfort [Unknown]
  - Drug interaction [Unknown]
  - Dizziness [Unknown]
  - Gait disturbance [Unknown]
  - Paranoia [Unknown]
  - Musculoskeletal stiffness [Unknown]
  - Clumsiness [Unknown]
  - Balance disorder [Unknown]
  - Tremor [Unknown]
  - Ataxia [Recovered/Resolved with Sequelae]

NARRATIVE: CASE EVENT DATE: 201602
